FAERS Safety Report 9721562 (Version 6)
Quarter: 2014Q2

REPORT INFORMATION
  Report Type: Spontaneous
  Country: JP (occurrence: JP)
  Receive Date: 20131130
  Receipt Date: 20140425
  Transmission Date: 20141212
  Serious: Yes (Hospitalization, Other)
  Sender: FDA-Public Use
  Company Number: PHHY2013JP138650

PATIENT
  Age: 82 Year
  Sex: Male
  Weight: 50 kg

DRUGS (10)
  1. EXELON PATCH [Suspect]
     Indication: DEMENTIA ALZHEIMER^S TYPE
     Dosage: 1.9 MG/24 HOURS (4.5 MG DAILY)
     Route: 062
     Dates: start: 20131031, end: 20131124
  2. MEMARY [Concomitant]
     Indication: DEMENTIA ALZHEIMER^S TYPE
     Dosage: 20 MG, UNK
     Route: 048
     Dates: start: 20120215
  3. ARICEPT [Concomitant]
     Indication: DEMENTIA ALZHEIMER^S TYPE
     Dosage: 5 MG, UNK
     Route: 048
     Dates: start: 20121108, end: 20131030
  4. DIART [Concomitant]
     Dosage: 30 MG, UNK
     Route: 048
  5. ZYLORIC [Concomitant]
     Dosage: 100 MG, UNK
     Route: 048
  6. MAINTATE [Concomitant]
     Dosage: 5 MG, UNK
     Route: 048
  7. TANATRIL [Concomitant]
     Dosage: 2.5 MG, UNK
     Route: 048
  8. LIPIDIL [Concomitant]
     Dosage: 100 MG, UNK
     Route: 048
  9. LIPIDIL [Concomitant]
     Dosage: 80 MG, UNK
     Route: 048
  10. NEXUM [Concomitant]
     Dosage: 10 MG, UNK
     Route: 048
     Dates: start: 201205

REACTIONS (14)
  - Renal impairment [Unknown]
  - Blood creatinine increased [Unknown]
  - Blood urea increased [Unknown]
  - Urine output decreased [Unknown]
  - Hepatic function abnormal [Recovered/Resolved]
  - Aspartate aminotransferase increased [Unknown]
  - Alanine aminotransferase increased [Unknown]
  - Gamma-glutamyltransferase increased [Unknown]
  - Blood albumin decreased [Unknown]
  - Blood bilirubin increased [Unknown]
  - Platelet count decreased [Unknown]
  - Prothrombin time prolonged [Unknown]
  - Haematocrit decreased [Unknown]
  - Red blood cell count decreased [Unknown]
